FAERS Safety Report 12737659 (Version 3)
Quarter: 2016Q3

REPORT INFORMATION
  Report Type: Report from Study
  Country: IL (occurrence: IL)
  Receive Date: 20160913
  Receipt Date: 20160920
  Transmission Date: 20161109
  Serious: Yes (Hospitalization, Other)
  Sender: FDA-Public Use
  Company Number: IL-ABBVIE-16K-082-1724884-00

PATIENT
  Sex: Male

DRUGS (1)
  1. DUODOPA [Suspect]
     Active Substance: CARBIDOPA\LEVODOPA
     Indication: PRODUCT USED FOR UNKNOWN INDICATION
     Route: 050

REACTIONS (7)
  - Speech disorder [Recovering/Resolving]
  - Renal cancer metastatic [Recovering/Resolving]
  - Muscular weakness [Not Recovered/Not Resolved]
  - Pneumonia [Recovering/Resolving]
  - Prostate cancer metastatic [Recovering/Resolving]
  - Lung neoplasm malignant [Recovering/Resolving]
  - Pyrexia [Recovered/Resolved]
